FAERS Safety Report 16377450 (Version 2)
Quarter: 2019Q2

REPORT INFORMATION
  Report Type: Report from Study
  Country: JP (occurrence: JP)
  Receive Date: 20190531
  Receipt Date: 20190627
  Transmission Date: 20190711
  Serious: Yes (Death)
  Sender: FDA-Public Use
  Company Number: JP-JNJFOC-20190539003

PATIENT
  Age: 61 Year
  Sex: Female
  Weight: 46.4 kg

DRUGS (6)
  1. DARZALEX [Suspect]
     Active Substance: DARATUMUMAB
     Indication: PLASMA CELL MYELOMA
     Dosage: 2 CYCLES. GENETICAL RECOMBINATION: 100 MG
     Route: 041
     Dates: start: 20180319, end: 20180528
  2. VELCADE [Suspect]
     Active Substance: BORTEZOMIB
     Indication: PLASMA CELL MYELOMA
     Dosage: 2 CYCLES.
     Route: 065
     Dates: start: 20180319, end: 20180510
  3. LENALIDOMIDE [Suspect]
     Active Substance: LENALIDOMIDE
     Indication: PLASMA CELL MYELOMA
     Dosage: 2 CYCLES.
     Route: 048
     Dates: start: 20180514, end: 20180527
  4. LENALIDOMIDE [Suspect]
     Active Substance: LENALIDOMIDE
     Route: 048
     Dates: start: 20180528, end: 20180601
  5. DEXAMETHASONE. [Suspect]
     Active Substance: DEXAMETHASONE
     Route: 065
     Dates: start: 20180319, end: 20180529
  6. DEXAMETHASONE. [Suspect]
     Active Substance: DEXAMETHASONE
     Indication: PLASMA CELL MYELOMA
     Dosage: 2 CYCLES.
     Route: 065

REACTIONS (2)
  - Pulmonary haemorrhage [Fatal]
  - Platelet count decreased [Recovered/Resolved]

NARRATIVE: CASE EVENT DATE: 20180424
